FAERS Safety Report 17517104 (Version 1)
Quarter: 2020Q1

REPORT INFORMATION
  Report Type: Spontaneous
  Country: US (occurrence: US)
  Receive Date: 20200307
  Receipt Date: 20200307
  Transmission Date: 20200409
  Serious: Yes (Other)
  Sender: FDA-Public Use
  Company Number: None

PATIENT
  Age: 72 Year
  Sex: Male
  Weight: 54.9 kg

DRUGS (6)
  1. REGLAN [Concomitant]
     Active Substance: METOCLOPRAMIDE HYDROCHLORIDE
  2. SIMETHICONE 125MG [Concomitant]
  3. CAPECITABINE. [Suspect]
     Active Substance: CAPECITABINE
     Indication: PANCREATIC CARCINOMA
     Dosage: ?          OTHER FREQUENCY:BID X14 DAYS, 7OFF;?
     Route: 048
     Dates: start: 20190607, end: 20200307
  4. PROTONIX [Concomitant]
     Active Substance: PANTOPRAZOLE SODIUM
  5. CAPECITABINE. [Suspect]
     Active Substance: CAPECITABINE
     Indication: PANCREATIC CARCINOMA
     Dosage: ?          OTHER FREQUENCY:BIDX 14 DAYS, 7OFF;?
     Route: 048
     Dates: start: 20190607, end: 20200307
  6. ONDANSETRON 4MG [Concomitant]
     Active Substance: ONDANSETRON

REACTIONS (1)
  - Disease progression [None]

NARRATIVE: CASE EVENT DATE: 20200307
